FAERS Safety Report 20515186 (Version 2)
Quarter: 2024Q2

REPORT INFORMATION
  Report Type: Spontaneous
  Country: US (occurrence: US)
  Receive Date: 20220224
  Receipt Date: 20240625
  Transmission Date: 20240716
  Serious: Yes (Other)
  Sender: FDA-Public Use
  Company Number: US-PFIZER INC-202200282651

PATIENT
  Age: 42 Year
  Sex: Female
  Weight: 75.75 kg

DRUGS (2)
  1. XELJANZ XR [Suspect]
     Active Substance: TOFACITINIB CITRATE
     Indication: Rheumatoid arthritis
     Dosage: 11 MG, 1X/DAY
     Route: 048
     Dates: end: 20240603
  2. MELOXICAM [Concomitant]
     Active Substance: MELOXICAM
     Indication: Rheumatoid arthritis
     Dosage: 15 MG, 1X/DAY

REACTIONS (2)
  - Mental impairment [Unknown]
  - Hysterectomy [Unknown]

NARRATIVE: CASE EVENT DATE: 20240611
